FAERS Safety Report 5948628-1 (Version None)
Quarter: 2008Q4

REPORT INFORMATION
  Report Type: 
  Country: None (occurrence: None)
  Receive Date: 20081021
  Receipt Date: 20080403
  Transmission Date: 20090506
  Serious: Yes (Life-Threatening, Other)
  Sender: FDA-Public Use
  Company Number: HQWYE459130JUL03

PATIENT
  Age: 53 Year
  Sex: Female

DRUGS (2)
  1. PREMARIN [Suspect]
     Dosage: UNSPECIFIED DOSE DAILY ^IN THE 1990'S^, ORAL
     Route: 048
  2. PREMPRO [Suspect]

REACTIONS (1)
  - BREAST CANCER FEMALE [None]
